FAERS Safety Report 21435557 (Version 1)
Quarter: 2022Q4

REPORT INFORMATION
  Report Type: Spontaneous
  Country: SE (occurrence: SE)
  Receive Date: 20221010
  Receipt Date: 20221010
  Transmission Date: 20230113
  Serious: Yes (Hospitalization)
  Sender: FDA-Public Use
  Company Number: None

PATIENT
  Age: 38 Year
  Sex: Male

DRUGS (2)
  1. ACETAMINOPHEN [Suspect]
     Active Substance: ACETAMINOPHEN
     Indication: Product used for unknown indication
     Dosage: 20 TABLETTER, 500 MILIGRAM.
     Route: 065
     Dates: start: 20220918, end: 20220919
  2. CAFFEINE\EPHEDRINE\PROMETHAZINE [Suspect]
     Active Substance: CAFFEINE\EPHEDRINE\PROMETHAZINE
     Dosage: 25 STYCKEN, CA 10 GRAM.
     Dates: start: 20220918, end: 20220919

REACTIONS (5)
  - Sinus tachycardia [Recovering/Resolving]
  - Intentional overdose [Recovering/Resolving]
  - Intentional self-injury [Recovering/Resolving]
  - Ventricular extrasystoles [Recovering/Resolving]
  - Toxicity to various agents [Recovering/Resolving]

NARRATIVE: CASE EVENT DATE: 20220918
